FAERS Safety Report 7361263 (Version 26)
Quarter: 2016Q4

REPORT INFORMATION
  Report Type: Report from Study
  Country: CA (occurrence: CA)
  Receive Date: 20100421
  Receipt Date: 20161031
  Transmission Date: 20170207
  Serious: Yes (Other)
  Sender: FDA-Public Use
  Company Number: PHHY2010CA22484

PATIENT
  Age: 49 Year
  Sex: Female

DRUGS (2)
  1. SYNTHROID [Concomitant]
     Active Substance: LEVOTHYROXINE SODIUM
     Indication: PRODUCT USED FOR UNKNOWN INDICATION
     Dosage: 0.05 MG, QD
     Route: 065
  2. SANDOSTATIN LAR DEPOT [Suspect]
     Active Substance: OCTREOTIDE ACETATE
     Indication: ACROMEGALY
     Dosage: 30 MG, EVERY 4 WEEKS/QMO
     Route: 030

REACTIONS (31)
  - Intracranial aneurysm [Unknown]
  - Vertigo [Unknown]
  - Menstruation irregular [Unknown]
  - Visual impairment [Unknown]
  - Hypersensitivity [Unknown]
  - Needle issue [Unknown]
  - Headache [Not Recovered/Not Resolved]
  - Fall [Unknown]
  - Pain [Unknown]
  - Injury associated with device [Unknown]
  - Pruritus generalised [Unknown]
  - Wrong technique in product usage process [Unknown]
  - Aura [Not Recovered/Not Resolved]
  - Pain in extremity [Unknown]
  - Rash pruritic [Unknown]
  - Injection site pain [Unknown]
  - Nausea [Unknown]
  - Head injury [Unknown]
  - Concussion [Unknown]
  - Arthralgia [Unknown]
  - Hot flush [Unknown]
  - Premenstrual headache [Recovering/Resolving]
  - Dyspnoea [Unknown]
  - Thyroid mass [Unknown]
  - Blood pressure diastolic increased [Unknown]
  - Insulin-like growth factor increased [Unknown]
  - Musculoskeletal pain [Unknown]
  - Back pain [Unknown]
  - Erythema multiforme [Unknown]
  - Migraine [Unknown]
  - Drug effect decreased [Unknown]

NARRATIVE: CASE EVENT DATE: 20140212
